FAERS Safety Report 8011012-3 (Version None)
Quarter: 2011Q4

REPORT INFORMATION
  Report Type: 
  Country: None (occurrence: None)
  Receive Date: 20111228
  Receipt Date: 20111216
  Transmission Date: 20120403
  Serious: Yes (Other)
  Sender: FDA-Public Use
  Company Number: US-ELI_LILLY_AND_COMPANY-US201112004820

PATIENT
  Sex: Female

DRUGS (1)
  1. ZYPREXA [Suspect]

REACTIONS (15)
  - SUICIDAL IDEATION [None]
  - ASTHENIA [None]
  - PSYCHOTIC DISORDER [None]
  - AKATHISIA [None]
  - WEIGHT INCREASED [None]
  - HYPOAESTHESIA [None]
  - METABOLIC SYNDROME [None]
  - NEUROTOXICITY [None]
  - DYSPNOEA [None]
  - BLOOD CHOLESTEROL INCREASED [None]
  - CONVULSION [None]
  - ABDOMINAL PAIN [None]
  - AGITATION [None]
  - MEMORY IMPAIRMENT [None]
  - BLOOD PRESSURE INCREASED [None]
